FAERS Safety Report 16830414 (Version 3)
Quarter: 2020Q2

REPORT INFORMATION
  Report Type: Report from Study
  Country: None (occurrence: CO)
  Receive Date: 20190920
  Receipt Date: 20200405
  Transmission Date: 20200713
  Serious: Yes (Other)
  Sender: FDA-Public Use
  Company Number: CO-ABBVIE-19K-036-2931083-00

PATIENT
  Age: 62 Year
  Sex: Female
  Weight: 58 kg

DRUGS (2)
  1. HUMIRA [Suspect]
     Active Substance: ADALIMUMAB
     Indication: RHEUMATOID ARTHRITIS
     Route: 058
     Dates: start: 20151127
  2. HUMIRA [Suspect]
     Active Substance: ADALIMUMAB
     Indication: RHEUMATOID ARTHRITIS
     Route: 058

REACTIONS (18)
  - Abdominal pain upper [Unknown]
  - Amnesia [Not Recovered/Not Resolved]
  - Arthralgia [Recovering/Resolving]
  - Speech disorder [Not Recovered/Not Resolved]
  - Arthritis [Recovering/Resolving]
  - Influenza [Recovering/Resolving]
  - Dengue fever [Recovering/Resolving]
  - Confusional state [Unknown]
  - Food intolerance [Recovered/Resolved]
  - Tremor [Recovering/Resolving]
  - Gastrointestinal disorder [Recovered/Resolved]
  - Chills [Recovering/Resolving]
  - Aphonia [Recovering/Resolving]
  - Weight decreased [Recovered/Resolved]
  - Gastritis [Recovered/Resolved]
  - Pain in extremity [Recovering/Resolving]
  - Dyspnoea [Not Recovered/Not Resolved]
  - Pyrexia [Recovering/Resolving]

NARRATIVE: CASE EVENT DATE: 201809
